FAERS Safety Report 13352327 (Version 2)
Quarter: 2018Q1

REPORT INFORMATION
  Report Type: Spontaneous
  Country: US (occurrence: US)
  Receive Date: 20170320
  Receipt Date: 20180319
  Transmission Date: 20180508
  Serious: No
  Sender: FDA-Public Use
  Company Number: US-SA-2017SA008737

PATIENT
  Age: 89 Year
  Sex: Female

DRUGS (1)
  1. NASACORT ALLERGY 24HR [Suspect]
     Active Substance: TRIAMCINOLONE ACETONIDE
     Route: 045
     Dates: start: 20161021

REACTIONS (3)
  - Drug effect incomplete [Unknown]
  - Cough [Unknown]
  - Product use issue [Unknown]
